FAERS Safety Report 9730639 (Version 2)
Quarter: 2014Q1

REPORT INFORMATION
  Report Type: Report from Study
  Country: GB (occurrence: GB)
  Receive Date: 20131205
  Receipt Date: 20140119
  Transmission Date: 20141002
  Serious: Yes (Hospitalization)
  Sender: FDA-Public Use
  Company Number: GB-ROCHE-1313239

PATIENT
  Age: 38 Year
  Sex: Female

DRUGS (2)
  1. XOLAIR [Suspect]
     Indication: CHRONIC SPONTANEOUS URTICARIA
     Route: 065
  2. PREDNISOLONE [Concomitant]

REACTIONS (4)
  - Meralgia paraesthetica [Recovered/Resolved]
  - Feeling cold [Unknown]
  - Urticaria [Recovered/Resolved]
  - Drug ineffective [Unknown]
